FAERS Safety Report 17901664 (Version 1)
Quarter: 2020Q2

REPORT INFORMATION
  Report Type: Spontaneous
  Country: GB (occurrence: GB)
  Receive Date: 20200616
  Receipt Date: 20200616
  Transmission Date: 20200714
  Serious: Yes (Other)
  Sender: FDA-Public Use
  Company Number: GB-PFIZER INC-2020230126

PATIENT
  Age: 67 Year
  Sex: Male
  Weight: 77 kg

DRUGS (15)
  1. ATORVASTATIN CALCIUM. [Suspect]
     Active Substance: ATORVASTATIN CALCIUM
     Indication: BLOOD CHOLESTEROL INCREASED
     Dosage: 40 MG, 1X/DAY
     Route: 048
     Dates: start: 20140915, end: 20200209
  2. RAMIPRIL. [Concomitant]
     Active Substance: RAMIPRIL
     Dosage: 10 MG, 1X/DAY
  3. VITAMINS NOS [Concomitant]
     Active Substance: VITAMINS
  4. PROTOPIC [Concomitant]
     Active Substance: TACROLIMUS
     Dosage: 1 %
  5. INCRUSE ELLIPTA [Concomitant]
     Active Substance: UMECLIDINIUM BROMIDE
  6. VITAMIN D NOS [Concomitant]
     Active Substance: VITAMIN D NOS
  7. DERMOL [BENZALKONIUM CHLORIDE;CHLORHEXIDINE HYDROCHLORIDE;ISOPROPYL MY [Concomitant]
  8. ASCORBIC ACID. [Concomitant]
     Active Substance: ASCORBIC ACID
  9. MESALAZINE [Concomitant]
     Active Substance: MESALAMINE
     Dosage: 1G/100ML.
  10. FYBOGEL [Concomitant]
     Active Substance: PLANTAGO OVATA SEED
  11. PENTASA [Concomitant]
     Active Substance: MESALAMINE
     Dosage: 2 G
  12. SALBUTAMOL [Concomitant]
     Active Substance: ALBUTEROL
     Dosage: 100 UG
     Route: 055
  13. MOMETASONE FUROATE. [Concomitant]
     Active Substance: MOMETASONE FUROATE
     Dosage: 0.1 %
  14. HYDROMOL [EMULSIFYING WAX;PARAFFIN SOFT] [Concomitant]
  15. TAMSULOSIN [Concomitant]
     Active Substance: TAMSULOSIN
     Dosage: MODIFIED RELEASE

REACTIONS (11)
  - Abdominal tenderness [Recovering/Resolving]
  - Irritable bowel syndrome [Recovering/Resolving]
  - Abdominal pain lower [Recovering/Resolving]
  - Back pain [Recovered/Resolved]
  - Inguinal hernia [Recovering/Resolving]
  - Condition aggravated [Unknown]
  - Abnormal loss of weight [Unknown]
  - Back pain [Recovering/Resolving]
  - Abdominal discomfort [Recovering/Resolving]
  - Prostate cancer [Unknown]
  - Atrophy [Recovered/Resolved]

NARRATIVE: CASE EVENT DATE: 2016
